FAERS Safety Report 13464352 (Version 1)
Quarter: 2017Q2

REPORT INFORMATION
  Report Type: Spontaneous
  Country: US (occurrence: US)
  Receive Date: 20170420
  Receipt Date: 20170420
  Transmission Date: 20170830
  Serious: No
  Sender: FDA-Public Use
  Company Number: US-009507513-1703USA012031

PATIENT
  Sex: Female

DRUGS (1)
  1. NEXPLANON [Suspect]
     Active Substance: ETONOGESTREL
     Indication: CONTRACEPTION
     Dosage: DOSE AND FREQUENCY REPORTED AS: 68 MG ETONOGESTREL / 3 YEARS
     Route: 059

REACTIONS (1)
  - Migration of implanted drug [Not Recovered/Not Resolved]
